FAERS Safety Report 8871654 (Version 1)
Quarter: 2012Q4

REPORT INFORMATION
  Report Type: 
  Country: FR (occurrence: FR)
  Receive Date: 20121030
  Receipt Date: 20121030
  Transmission Date: 20130627
  Serious: Yes (Life-Threatening, Hospitalization)
  Sender: FDA-Public Use
  Company Number: FR-ABBOTT-12P-056-0991745-00

PATIENT
  Age: 46 Year
  Sex: Male
  Weight: 77 kg

DRUGS (5)
  1. KALETRA [Suspect]
     Indication: HIV INFECTION
     Route: 048
     Dates: start: 20120502, end: 20120525
  2. KALETRA [Suspect]
     Indication: CD4 LYMPHOCYTES DECREASED
  3. KALETRA [Suspect]
     Indication: VIRAL LOAD INCREASED
  4. TRUVADA [Concomitant]
     Indication: HIV INFECTION
     Dates: start: 20120502
  5. BACTRIM [Concomitant]
     Indication: HIV INFECTION
     Route: 048
     Dates: start: 20120412, end: 20120525

REACTIONS (5)
  - General physical health deterioration [Recovered/Resolved]
  - Drug-induced liver injury [Recovered/Resolved]
  - Pyrexia [Recovered/Resolved]
  - Transaminases increased [Recovered/Resolved]
  - Hepatitis [Recovered/Resolved]
